FAERS Safety Report 14375586 (Version 1)
Quarter: 2018Q1

REPORT INFORMATION
  Report Type: Spontaneous
  Country: US (occurrence: US)
  Receive Date: 20180111
  Receipt Date: 20180111
  Transmission Date: 20180509
  Serious: Yes (Other)
  Sender: FDA-Public Use
  Company Number: US-PFIZER INC-2018014294

PATIENT
  Age: 59 Year
  Sex: Female
  Weight: 73.3 kg

DRUGS (1)
  1. XANAX [Suspect]
     Active Substance: ALPRAZOLAM
     Indication: ANXIETY
     Dosage: 1 MG, 3X/DAY
     Route: 048
     Dates: start: 1985

REACTIONS (2)
  - Seizure [Unknown]
  - Drug dependence [Unknown]

NARRATIVE: CASE EVENT DATE: 201707
